FAERS Safety Report 10387917 (Version 2)
Quarter: 2014Q4

REPORT INFORMATION
  Report Type: Spontaneous
  Country: JP (occurrence: JP)
  Receive Date: 20140815
  Receipt Date: 20141126
  Transmission Date: 20150528
  Serious: Yes (Life-Threatening)
  Sender: FDA-Public Use
  Company Number: PHHY2013JP161021

PATIENT
  Age: 65 Year
  Sex: Male
  Weight: 73 kg

DRUGS (8)
  1. ONOACT [Concomitant]
     Active Substance: LANDIOLOL HYDROCHLORIDE
     Indication: PRODUCT USED FOR UNKNOWN INDICATION
     Route: 065
  2. ARTIST [Concomitant]
     Active Substance: CARVEDILOL
     Indication: PRODUCT USED FOR UNKNOWN INDICATION
     Route: 065
  3. EXJADE [Suspect]
     Active Substance: DEFERASIROX
     Dosage: 1000 MG, QD
     Route: 048
  4. ONOACT [Concomitant]
     Active Substance: LANDIOLOL HYDROCHLORIDE
     Dosage: UNK
     Route: 065
  5. EXJADE [Suspect]
     Active Substance: DEFERASIROX
     Indication: IRON OVERLOAD
     Dosage: 1250 MG, QD
     Route: 048
     Dates: start: 20100906, end: 20130902
  6. ADRIACIN [Suspect]
     Active Substance: DOXORUBICIN HYDROCHLORIDE
     Indication: PRODUCT USED FOR UNKNOWN INDICATION
     Route: 065
  7. ANCARON [Concomitant]
     Active Substance: AMIODARONE HYDROCHLORIDE
     Indication: PRODUCT USED FOR UNKNOWN INDICATION
  8. ARTIST [Concomitant]
     Active Substance: CARVEDILOL
     Dosage: UNK
     Route: 065

REACTIONS (17)
  - Glomerular filtration rate decreased [Unknown]
  - Alanine aminotransferase increased [Unknown]
  - Blood creatinine increased [Recovering/Resolving]
  - Blood urea increased [Unknown]
  - Renal disorder [Recovering/Resolving]
  - Blood albumin decreased [Unknown]
  - Haemoglobin decreased [Unknown]
  - Blood potassium increased [Unknown]
  - Ejection fraction abnormal [Unknown]
  - White blood cell count decreased [Recovered/Resolved]
  - Protein total decreased [Unknown]
  - C-reactive protein increased [Unknown]
  - Cardiac failure [Not Recovered/Not Resolved]
  - Heart rate increased [Unknown]
  - Computerised tomogram abnormal [Unknown]
  - X-ray abnormal [Unknown]
  - Aspartate aminotransferase increased [Unknown]

NARRATIVE: CASE EVENT DATE: 20100906
